FAERS Safety Report 7761690-9 (Version None)
Quarter: 2011Q3

REPORT INFORMATION
  Report Type: 
  Country: None (occurrence: None)
  Receive Date: 20110920
  Receipt Date: 20110912
  Transmission Date: 20111222
  Serious: Yes (Hospitalization)
  Sender: FDA-Public Use
  Company Number: GB-BRISTOL-MYERS SQUIBB COMPANY-16062531

PATIENT
  Sex: Male

DRUGS (1)
  1. VIDEX [Suspect]
     Dosage: CAPSULES

REACTIONS (1)
  - PNEUMONIA [None]
